FAERS Safety Report 9620630 (Version 1)
Quarter: 2013Q4

REPORT INFORMATION
  Report Type: Spontaneous
  Country: US (occurrence: US)
  Receive Date: 20131015
  Receipt Date: 20131015
  Transmission Date: 20140711
  Serious: Yes (Hospitalization, Other)
  Sender: FDA-Public Use
  Company Number: US-AMGEN-USASP2013071800

PATIENT
  Age: 58 Year
  Sex: Female

DRUGS (1)
  1. ENBREL [Suspect]
     Indication: PSORIATIC ARTHROPATHY
     Dosage: 50 MG, QWK
     Route: 065
     Dates: start: 2010

REACTIONS (9)
  - Femur fracture [Recovered/Resolved]
  - Tibia fracture [Recovered/Resolved]
  - Lower limb fracture [Recovered/Resolved]
  - Fall [Recovered/Resolved]
  - Hand fracture [Recovered/Resolved]
  - Fracture malunion [Recovered/Resolved]
  - Eye operation [Recovered/Resolved]
  - Vitamin D deficiency [Unknown]
  - Injection site pain [Not Recovered/Not Resolved]
